FAERS Safety Report 6785891-1 (Version None)
Quarter: 2010Q2

REPORT INFORMATION
  Report Type: 
  Country: None (occurrence: None)
  Receive Date: 20100622
  Receipt Date: 20100622
  Transmission Date: 20101027
  Serious: Yes (Life-Threatening)
  Sender: FDA-Public Use
  Company Number: None

PATIENT
  Age: 56 Year
  Sex: Female
  Weight: 63.5036 kg

DRUGS (1)
  1. AVELOX [Suspect]
     Indication: BRONCHITIS
     Dates: start: 20100617, end: 20100617

REACTIONS (5)
  - AGITATION [None]
  - HEART RATE INCREASED [None]
  - INSOMNIA [None]
  - RESTLESSNESS [None]
  - TREMOR [None]
